FAERS Safety Report 6526622-X (Version None)
Quarter: 2010Q1

REPORT INFORMATION
  Report Type: 
  Country: None (occurrence: None)
  Receive Date: 20100105
  Receipt Date: 20091229
  Transmission Date: 20100710
  Serious: Yes (Death)
  Sender: FDA-Public Use
  Company Number: CN-ROCHE-676819

PATIENT
  Age: 7 Year

DRUGS (1)
  1. ROCEPHIN [Suspect]
     Dosage: ROCEPHIN WAS INFUSED AROUND 1.5 G IN TOTAL.
     Route: 041
     Dates: start: 20091229, end: 20091229

REACTIONS (1)
  - HAEMOLYTIC ANAEMIA [None]
